FAERS Safety Report 10067154 (Version 1)
Quarter: 2014Q2

REPORT INFORMATION
  Report Type: Spontaneous
  Country: US (occurrence: None)
  Receive Date: 20140408
  Receipt Date: 20140408
  Transmission Date: 20141212
  Serious: No
  Sender: FDA-Public Use
  Company Number: None

PATIENT
  Age: 31 Year
  Sex: Male
  Weight: 81.65 kg

DRUGS (1)
  1. XZEN GOLD [Suspect]
     Indication: ERECTILE DYSFUNCTION
     Dosage: 1 PILL
     Route: 048
     Dates: start: 20140327, end: 20140406

REACTIONS (5)
  - Headache [None]
  - Peripheral swelling [None]
  - Gait disturbance [None]
  - Swelling face [None]
  - Amnesia [None]
